FAERS Safety Report 19844350 (Version 2)
Quarter: 2021Q3

REPORT INFORMATION
  Report Type: Report from Study
  Country: US (occurrence: US)
  Receive Date: 20210917
  Receipt Date: 20210926
  Transmission Date: 20211014
  Serious: Yes (Death, Hospitalization, Other)
  Sender: FDA-Public Use
  Company Number: US-BAUSCH-BL-2021-031882

PATIENT
  Age: 69 Year
  Sex: Female
  Weight: 80.2 kg

DRUGS (1)
  1. XIFAXAN [Suspect]
     Active Substance: RIFAXIMIN
     Indication: HEPATIC CIRRHOSIS
     Route: 048

REACTIONS (4)
  - Death [Fatal]
  - Dehydration [Unknown]
  - Multiple organ dysfunction syndrome [Fatal]
  - Lethargy [Unknown]

NARRATIVE: CASE EVENT DATE: 20210909
